FAERS Safety Report 9900656 (Version 2)
Quarter: 2014Q2

REPORT INFORMATION
  Report Type: Report from Study
  Country: DE (occurrence: DE)
  Receive Date: 20140217
  Receipt Date: 20140402
  Transmission Date: 20141212
  Serious: Yes (Death, Life-Threatening, Hospitalization, Other)
  Sender: FDA-Public Use
  Company Number: DE-ACTELION-A-NJ2014-94943

PATIENT
  Age: 74 Year
  Sex: Female

DRUGS (13)
  1. VENTAVIS [Suspect]
     Indication: PULMONARY ARTERIAL HYPERTENSION
     Dosage: 2.5 MCG, Q4HRS
     Route: 055
     Dates: start: 20131021
  2. TRACLEER [Concomitant]
     Indication: PULMONARY ARTERIAL HYPERTENSION
     Route: 048
  3. RAMILICH [Concomitant]
  4. PANTOPRAZOLE [Concomitant]
  5. METOHEXAL SUCC [Concomitant]
  6. ADCIRCA [Concomitant]
  7. VOLIBRIS [Concomitant]
  8. REVATIO [Concomitant]
  9. BELOC [Concomitant]
  10. HYDROCHLOROTHIAZIDE [Concomitant]
  11. TOREM [Concomitant]
  12. SPIRONOLACTONE [Concomitant]
  13. TROMETAMOL [Concomitant]

REACTIONS (11)
  - Pulmonary arterial hypertension [Fatal]
  - Cardiac arrest [Recovered/Resolved]
  - Coma [Unknown]
  - Renal failure acute [Unknown]
  - Brain injury [Unknown]
  - Pyrexia [Unknown]
  - Syncope [Unknown]
  - Respiratory failure [Unknown]
  - Cor pulmonale [Unknown]
  - Hypertensive heart disease [Unknown]
  - Hypertension [Unknown]
